FAERS Safety Report 8030539-1 (Version None)
Quarter: 2012Q1

REPORT INFORMATION
  Report Type: 
  Country: None (occurrence: None)
  Receive Date: 20120105
  Receipt Date: 20111220
  Transmission Date: 20120608
  Serious: Yes (Other)
  Sender: FDA-Public Use
  Company Number: MYCO20110020

PATIENT
  Age: 52 Year
  Sex: Male

DRUGS (2)
  1. MYCOPHENOLATE MOFETIL [Suspect]
     Indication: IMMUNOSUPPRESSION
     Dosage: UNK,UNK,UNKNOWN
  2. PREDNISONE TAB [Suspect]
     Indication: IMMUNOSUPPRESSION
     Dosage: UNK,UNK,UNKNOWN

REACTIONS (2)
  - MUIR-TORRE SYNDROME [None]
  - REFUSAL OF TREATMENT BY PATIENT [None]
